FAERS Safety Report 9486726 (Version 1)
Quarter: 2013Q3

REPORT INFORMATION
  Report Type: Spontaneous
  Country: US (occurrence: None)
  Receive Date: 20130827
  Receipt Date: 20130827
  Transmission Date: 20140515
  Serious: Yes (Other)
  Sender: FDA-Public Use
  Company Number: None

PATIENT
  Age: 53 None
  Sex: Male

DRUGS (2)
  1. RISPERIDONE [Suspect]
     Indication: BIPOLAR DISORDER
     Dates: start: 2011, end: 2013
  2. PENICILLIN [Concomitant]

REACTIONS (3)
  - Breast enlargement [None]
  - Weight increased [None]
  - Penis disorder [None]
